FAERS Safety Report 8397561-7 (Version None)
Quarter: 2012Q2

REPORT INFORMATION
  Report Type: 
  Country: None (occurrence: None)
  Receive Date: 20120531
  Receipt Date: 20120526
  Transmission Date: 20120825
  Serious: Yes (Hospitalization)
  Sender: FDA-Public Use
  Company Number: US-BAYER-201037494NA

PATIENT
  Age: 28 Year
  Sex: Female
  Weight: 56.689 kg

DRUGS (11)
  1. YAZ [Suspect]
     Indication: CONTRACEPTION
     Dosage: UNK
     Route: 048
     Dates: start: 20070801, end: 20091003
  2. ZYRTEC [Concomitant]
  3. FLUCONAZOLE [Concomitant]
     Dosage: 150 MG, UNK
  4. PRILOSEC [Concomitant]
  5. ACYCLOVIR ALPHARMA [ACICLOVIR SODIUM] [Concomitant]
     Dosage: 400 MG, UNK
  6. AMOXICILLIN AND CLAVULANATE POTASSIUM [Concomitant]
  7. NASONEX [Concomitant]
  8. TRAMADOL HCL [Concomitant]
     Dosage: 50 MG, UNK
  9. GABAPENTIN [Concomitant]
  10. SOLU-MEDROL [Concomitant]
     Dosage: 125 MG, UNK
  11. BENADRYL [Concomitant]

REACTIONS (2)
  - DEEP VEIN THROMBOSIS [None]
  - PAIN [None]
